FAERS Safety Report 16682252 (Version 5)
Quarter: 2021Q3

REPORT INFORMATION
  Report Type: Report from Study
  Country: JP (occurrence: JP)
  Receive Date: 20190808
  Receipt Date: 20210804
  Transmission Date: 20211014
  Serious: Yes (Other)
  Sender: FDA-Public Use
  Company Number: JP-ROCHE-2372278

PATIENT
  Sex: Female

DRUGS (16)
  1. TRASTUZUMAB. [Suspect]
     Active Substance: TRASTUZUMAB
     Route: 041
     Dates: start: 20210107
  2. CAPECITABINE. [Suspect]
     Active Substance: CAPECITABINE
     Dosage: 2 WEEKS AND 1 WEEK LEAVE OF MEDICINE.
     Route: 048
     Dates: start: 20190517
  3. CAPECITABINE. [Suspect]
     Active Substance: CAPECITABINE
     Dosage: IT IS ADMINISTER/ONE WEEKLY HOLIDAY MEDICINE FOR TWO WEEKS.
     Route: 048
     Dates: start: 20200116, end: 20200305
  4. CAPECITABINE. [Suspect]
     Active Substance: CAPECITABINE
     Route: 048
     Dates: start: 20210107
  5. TRASTUZUMAB. [Suspect]
     Active Substance: TRASTUZUMAB
     Route: 041
     Dates: start: 20180319, end: 20200220
  6. TRASTUZUMAB. [Suspect]
     Active Substance: TRASTUZUMAB
     Route: 041
     Dates: start: 20201119, end: 20201210
  7. CAPECITABINE. [Suspect]
     Active Substance: CAPECITABINE
     Indication: BREAST CANCER
     Dosage: IT IS ADMINISTER/ONE WEEKLY HOLIDAY MEDICINE FOR TWO WEEKS.
     Route: 048
     Dates: start: 20180227, end: 20180402
  8. CAPECITABINE. [Suspect]
     Active Substance: CAPECITABINE
     Dosage: DOSE INTERVAL UNCERTAINTY
     Route: 048
     Dates: start: 20180416, end: 20190419
  9. CAPECITABINE. [Suspect]
     Active Substance: CAPECITABINE
     Dosage: 2 WEEKS AND 1 WEEK LEAVE OF MEDICINE.
     Route: 048
     Dates: start: 20190426
  10. CAPECITABINE. [Suspect]
     Active Substance: CAPECITABINE
     Dosage: IT IS ADMINISTER/ONE WEEKLY HOLIDAY MEDICINE FOR TWO WEEKS.
     Route: 048
     Dates: start: 20200423, end: 20201008
  11. TRASTUZUMAB. [Suspect]
     Active Substance: TRASTUZUMAB
     Indication: BREAST CANCER
     Route: 041
     Dates: start: 20180226, end: 20180226
  12. TRASTUZUMAB. [Suspect]
     Active Substance: TRASTUZUMAB
     Route: 041
     Dates: start: 20200402, end: 20200604
  13. TRASTUZUMAB. [Suspect]
     Active Substance: TRASTUZUMAB
     Route: 041
     Dates: start: 20200716, end: 20201008
  14. CAPECITABINE. [Suspect]
     Active Substance: CAPECITABINE
     Dosage: IT IS ADMINISTER/ONE WEEKLY HOLIDAY MEDICINE FOR TWO WEEKS.
     Route: 048
     Dates: start: 20180503, end: 20191226
  15. CAPECITABINE. [Suspect]
     Active Substance: CAPECITABINE
     Dosage: IT IS ADMINISTER/ONE WEEKLY HOLIDAY MEDICINE FOR TWO WEEKS.
     Route: 048
     Dates: start: 20200409, end: 20200416
  16. CAPECITABINE. [Suspect]
     Active Substance: CAPECITABINE
     Route: 048
     Dates: start: 20201119, end: 20201210

REACTIONS (3)
  - Lymphocyte count decreased [Unknown]
  - Fall [Unknown]
  - Fibula fracture [Unknown]

NARRATIVE: CASE EVENT DATE: 20190315
